FAERS Safety Report 4492010-3 (Version None)
Quarter: 2004Q4

REPORT INFORMATION
  Report Type: 
  Country: None (occurrence: None)
  Receive Date: 20041101
  Receipt Date: 20040922
  Transmission Date: 20050328
  Serious: Yes (Death)
  Sender: FDA-Public Use
  Company Number: 2004-00544

PATIENT
  Age: 63 Year
  Sex: Male
  Weight: 97.5 kg

DRUGS (5)
  1. VELCADE [Suspect]
     Indication: LYMPHOMA
     Dates: start: 20040801
  2. MORPHINE SULFATE [Concomitant]
  3. OXYCODONE (OXYCODONE) [Concomitant]
  4. OXYCONTIN [Concomitant]
  5. INSULIN [Concomitant]

REACTIONS (1)
  - RENAL FAILURE [None]
